FAERS Safety Report 16193703 (Version 4)
Quarter: 2019Q2

REPORT INFORMATION
  Report Type: Spontaneous
  Country: US (occurrence: US)
  Receive Date: 20190413
  Receipt Date: 20190523
  Transmission Date: 20190711
  Serious: Yes (Other)
  Sender: FDA-Public Use
  Company Number: PHEH2019US015710

PATIENT
  Sex: Male
  Weight: 82.99 kg

DRUGS (6)
  1. AMLODIPINE [Concomitant]
     Active Substance: AMLODIPINE BESYLATE
     Indication: PRODUCT USED FOR UNKNOWN INDICATION
     Dosage: UNK
     Route: 065
  2. METOPROLOL. [Suspect]
     Active Substance: METOPROLOL
     Dosage: 25 MG, QD
     Route: 065
  3. LASIX [Concomitant]
     Active Substance: FUROSEMIDE
     Dosage: 80 MG, UNK
     Route: 065
  4. TYVASO [Suspect]
     Active Substance: TREPROSTINIL
     Indication: PULMONARY ARTERIAL HYPERTENSION
     Dosage: 18 TO 54 UG, QID (3 TO 9 BREATHS)
     Route: 055
     Dates: start: 20190321
  5. METOPROLOL. [Suspect]
     Active Substance: METOPROLOL
     Indication: PRODUCT USED FOR UNKNOWN INDICATION
     Dosage: 50 MG, UNK
     Route: 065
  6. LASIX [Concomitant]
     Active Substance: FUROSEMIDE
     Indication: PRODUCT USED FOR UNKNOWN INDICATION
     Dosage: 40 MG, UNK
     Route: 065

REACTIONS (16)
  - Fatigue [Unknown]
  - Weight decreased [Unknown]
  - Flushing [Unknown]
  - Decreased appetite [Unknown]
  - Abdominal distension [Unknown]
  - Dyspnoea exertional [Unknown]
  - Breath sounds abnormal [Unknown]
  - Oedema peripheral [Unknown]
  - Therapy non-responder [Unknown]
  - Heart rate irregular [Unknown]
  - Drug intolerance [Unknown]
  - Insomnia [Unknown]
  - Blood pressure decreased [Unknown]
  - Oxygen consumption increased [Unknown]
  - Feeling abnormal [Unknown]
  - Dyspnoea [Not Recovered/Not Resolved]
